FAERS Safety Report 8359297-8 (Version None)
Quarter: 2012Q2

REPORT INFORMATION
  Report Type: 
  Country: None (occurrence: None)
  Receive Date: 20120515
  Receipt Date: 20120507
  Transmission Date: 20120825
  Serious: Yes (Hospitalization, Other)
  Sender: FDA-Public Use
  Company Number: US-BAYER-2011-086482

PATIENT
  Age: 31 Year
  Sex: Female
  Weight: 141 kg

DRUGS (10)
  1. YASMIN [Suspect]
     Dosage: UNK
     Dates: start: 20081201, end: 20100301
  2. FLUTICASONE PROPIONATE [Concomitant]
     Dosage: 0.05% SPRAY
     Route: 045
  3. ALLEGRA [Concomitant]
  4. HYDROCHLOROTHIAZIDE [Concomitant]
     Dosage: 12.5 MG, UNK
     Route: 048
  5. PRILOSEC [Concomitant]
  6. PSEUDOEPHEDRINEHCL W/CHLORPHENI./DEXTROMETH. [Concomitant]
     Dosage: 30 MG, UNK
     Route: 048
  7. METFORMIN HCL [Concomitant]
     Dosage: 500 MG, UNK
     Route: 048
  8. YAZ [Suspect]
     Dosage: UNK
     Dates: start: 20081201
  9. DICYCLOMINE [Concomitant]
     Dosage: 20 MG, UNK
     Route: 048
  10. CELEXA [Concomitant]

REACTIONS (7)
  - DYSTHYMIC DISORDER [None]
  - GALLBLADDER DISORDER [None]
  - INJURY [None]
  - DEPRESSION [None]
  - CHOLECYSTITIS [None]
  - PANCREATITIS [None]
  - PAIN [None]
